FAERS Safety Report 6324004-7 (Version None)
Quarter: 2009Q3

REPORT INFORMATION
  Report Type: 
  Country: None (occurrence: None)
  Receive Date: 20090824
  Receipt Date: 20090820
  Transmission Date: 20100115
  Serious: Yes (Death, Hospitalization)
  Sender: FDA-Public Use
  Company Number: B0589680A

PATIENT
  Sex: Male
  Weight: 114 kg

DRUGS (12)
  1. MELPHALAN HYDROCHLORIDE [Suspect]
     Indication: MULTIPLE MYELOMA
     Dosage: .2MGK PER DAY
     Route: 048
     Dates: start: 20081224, end: 20090613
  2. THALIDOMIDE [Suspect]
     Indication: MULTIPLE MYELOMA
     Route: 048
     Dates: start: 20081224, end: 20090710
  3. PREDNISONE TAB [Suspect]
     Indication: MULTIPLE MYELOMA
     Dates: start: 20081224, end: 20090613
  4. TAHOR [Concomitant]
     Dosage: 10MG PER DAY
     Route: 048
     Dates: start: 19970101
  5. BISOPROLOL FUMARATE [Concomitant]
     Dosage: 20MG PER DAY
     Route: 048
     Dates: start: 19900101
  6. COTAREG [Concomitant]
     Dosage: 1TAB PER DAY
     Route: 048
     Dates: start: 19970101
  7. OMIX [Concomitant]
     Dosage: 1TAB PER DAY
     Route: 048
  8. GLUCOPHAGE [Concomitant]
     Dosage: 2TAB TWICE PER DAY
     Route: 048
     Dates: start: 19940101
  9. IXPRIM [Concomitant]
     Indication: THROMBOSIS PROPHYLAXIS
     Route: 048
     Dates: start: 20081224
  10. XYZAL [Concomitant]
     Indication: RASH
     Dosage: 5MG PER DAY
     Route: 048
     Dates: start: 20090219
  11. COLD CREAM [Concomitant]
     Indication: RASH
     Dates: start: 20090318
  12. NULYTELY [Concomitant]
     Indication: CONSTIPATION
     Route: 048
     Dates: start: 20090429

REACTIONS (10)
  - ATELECTASIS [None]
  - CARDIAC FAILURE [None]
  - CARDIOPULMONARY FAILURE [None]
  - DYSPNOEA [None]
  - GAMMA-GLUTAMYLTRANSFERASE INCREASED [None]
  - GENERAL PHYSICAL HEALTH DETERIORATION [None]
  - HYPOXIA [None]
  - PAIN [None]
  - PLEURAL EFFUSION [None]
  - PULMONARY EMBOLISM [None]
